FAERS Safety Report 6572933-1 (Version None)
Quarter: 2010Q1

REPORT INFORMATION
  Report Type: 
  Country: None (occurrence: None)
  Receive Date: 20100208
  Receipt Date: 20100127
  Transmission Date: 20100710
  Serious: Yes (Hospitalization)
  Sender: FDA-Public Use
  Company Number: BE-BIOGENIDEC-2010BI002462

PATIENT
  Age: 47 Year
  Sex: Female

DRUGS (5)
  1. TYSABRI [Suspect]
     Indication: RELAPSING-REMITTING MULTIPLE SCLEROSIS
     Route: 042
     Dates: start: 20090209
  2. ELTHYRONE [Concomitant]
  3. EFFEXOR [Concomitant]
  4. ASAFLOW [Concomitant]
  5. SIMVASTATIN [Concomitant]

REACTIONS (1)
  - RIB FRACTURE [None]
